FAERS Safety Report 17879860 (Version 4)
Quarter: 2020Q3

REPORT INFORMATION
  Report Type: Spontaneous
  Country: US (occurrence: US)
  Receive Date: 20200610
  Receipt Date: 20200902
  Transmission Date: 20201103
  Serious: No
  Sender: FDA-Public Use
  Company Number: US-PFIZER INC-2020225114

PATIENT
  Age: 85 Year
  Sex: Female
  Weight: 48.99 kg

DRUGS (3)
  1. XANAX [Suspect]
     Active Substance: ALPRAZOLAM
     Dosage: 0.25 MG, 4X/DAY (4 TIMES A DAY, SOMETIMES I TAKE IT 3 BUT MOST OF THE TIME I TAKE IT 4)
     Route: 048
  2. XANAX [Suspect]
     Active Substance: ALPRAZOLAM
     Indication: ESSENTIAL HYPERTENSION
     Dosage: 0.25 MG, 3X/DAY (4 TIMES A DAY, SOMETIMES I TAKE IT 3 BUT MOST OF THE TIME I TAKE IT 4)
     Route: 048
  3. XANAX [Suspect]
     Active Substance: ALPRAZOLAM
     Dosage: 0.25 MG, AS NEEDED (4 TABLETS DAILY ON PRN BASIS, BY MOUTH)
     Route: 048

REACTIONS (6)
  - Poor quality product administered [Unknown]
  - Product expiration date issue [Unknown]
  - Off label use [Unknown]
  - Product use in unapproved indication [Unknown]
  - Dysgeusia [Unknown]
  - Product coating issue [Unknown]
